FAERS Safety Report 6347270-0 (Version None)
Quarter: 2009Q3

REPORT INFORMATION
  Report Type: 
  Country: None (occurrence: None)
  Receive Date: 20090910
  Receipt Date: 20090826
  Transmission Date: 20100115
  Serious: Yes (Other)
  Sender: FDA-Public Use
  Company Number: US-JNJFOC-20090808634

PATIENT
  Sex: Female
  Weight: 77.11 kg

DRUGS (2)
  1. SIMPONI [Suspect]
     Indication: PSORIASIS
     Route: 058
     Dates: start: 20090701, end: 20090701
  2. SIMPONI [Suspect]
     Indication: PSORIATIC ARTHROPATHY
     Route: 058
     Dates: start: 20090701, end: 20090701

REACTIONS (4)
  - FATIGUE [None]
  - MOUTH ULCERATION [None]
  - NAUSEA [None]
  - TRISMUS [None]
